FAERS Safety Report 21469637 (Version 1)
Quarter: 2022Q4

REPORT INFORMATION
  Report Type: Spontaneous
  Country: US (occurrence: US)
  Receive Date: 20221018
  Receipt Date: 20221018
  Transmission Date: 20230112
  Serious: No
  Sender: FDA-Public Use
  Company Number: US-ADAMAS PHARMA, LLC-2021ADA02474

PATIENT
  Sex: Female

DRUGS (2)
  1. GOCOVRI [Suspect]
     Active Substance: AMANTADINE
     Indication: Dyskinesia
     Dosage: 68.5 MG, 1X/DAY IN THE EVENING AT BEDTIME
     Route: 048
     Dates: start: 202109, end: 202109
  2. GOCOVRI [Suspect]
     Active Substance: AMANTADINE
     Indication: On and off phenomenon
     Dosage: 68.5 MG, 1X/DAY IN THE EVENING AT BEDTIME
     Route: 048
     Dates: start: 202109, end: 20210927

REACTIONS (1)
  - Dizziness [Recovering/Resolving]

NARRATIVE: CASE EVENT DATE: 20210901
